FAERS Safety Report 10642216 (Version 1)
Quarter: 2014Q4

REPORT INFORMATION
  Report Type: Spontaneous
  Country: US (occurrence: US)
  Receive Date: 20141210
  Receipt Date: 20141210
  Transmission Date: 20150529
  Serious: Yes (Other)
  Sender: FDA-Public Use
  Company Number: US-ASTRAZENECA-2014SE93840

PATIENT
  Sex: Female

DRUGS (19)
  1. ASPIRIN. [Concomitant]
     Active Substance: ASPIRIN
  2. COENZYME Q10 [Concomitant]
     Active Substance: UBIDECARENONE
  3. VITAMIN C [Concomitant]
     Active Substance: ASCORBIC ACID
  4. TEGRETOL [Concomitant]
     Active Substance: CARBAMAZEPINE
     Route: 048
  5. TYLENOL [Concomitant]
     Active Substance: ACETAMINOPHEN
  6. CALCIUM [Concomitant]
     Active Substance: CALCIUM
  7. MULTIVITAMIN [Concomitant]
     Active Substance: VITAMINS
  8. LIPITOR [Suspect]
     Active Substance: ATORVASTATIN CALCIUM
     Route: 065
  9. ATENOLOL. [Suspect]
     Active Substance: ATENOLOL
     Route: 065
  10. METFORMIN (NON AZ DRUG) [Suspect]
     Active Substance: METFORMIN HYDROCHLORIDE
     Route: 065
  11. FLEXERIL [Concomitant]
     Active Substance: CYCLOBENZAPRINE HYDROCHLORIDE
  12. FLAXSEED [Concomitant]
     Active Substance: FLAX SEED
  13. NIACIN. [Concomitant]
     Active Substance: NIACIN
  14. GEMFIBROZIL. [Concomitant]
     Active Substance: GEMFIBROZIL
  15. GLYBURIDE. [Concomitant]
     Active Substance: GLYBURIDE
  16. SOY [Concomitant]
  17. VITAMIN D [Concomitant]
     Active Substance: CHOLECALCIFEROL
  18. RAMIPRIL. [Concomitant]
     Active Substance: RAMIPRIL
  19. ZINC [Concomitant]
     Active Substance: ZINC\ZINC CHLORIDE

REACTIONS (2)
  - Simple partial seizures [Unknown]
  - Complex partial seizures [Unknown]
